FAERS Safety Report 7483120-7 (Version None)
Quarter: 2011Q2

REPORT INFORMATION
  Report Type: 
  Country: None (occurrence: None)
  Receive Date: 20110516
  Receipt Date: 20110509
  Transmission Date: 20111010
  Serious: Yes (Life-Threatening, Hospitalization)
  Sender: FDA-Public Use
  Company Number: DE-AMGEN-DEUCT2011002701

PATIENT
  Age: 64 Year
  Sex: Male

DRUGS (6)
  1. METAMIZOLE [Concomitant]
     Dosage: UNK MG, UNK
  2. XIPAMIDE [Concomitant]
     Dosage: 20 MG, UNK
  3. PEMETREXED [Concomitant]
     Indication: NON-SMALL CELL LUNG CANCER
     Dosage: 500 MG/M2, UNK
     Dates: start: 20100715
  4. CISPLATIN [Concomitant]
     Indication: NON-SMALL CELL LUNG CANCER
     Dosage: 75 MG/M2, UNK
     Dates: start: 20100715
  5. VECTIBIX [Suspect]
     Indication: NON-SMALL CELL LUNG CANCER
     Dosage: 9 MG/KG, UNK
     Dates: start: 20100715, end: 20100917
  6. VERGENTAN [Concomitant]
     Dosage: 1 G, UNK

REACTIONS (5)
  - RASH [None]
  - GENERAL PHYSICAL HEALTH DETERIORATION [None]
  - WEIGHT DECREASED [None]
  - NAUSEA [None]
  - VOMITING [None]
